FAERS Safety Report 13081179 (Version 1)
Quarter: 2017Q1

REPORT INFORMATION
  Report Type: Spontaneous
  Country: FR (occurrence: FR)
  Receive Date: 20170103
  Receipt Date: 20170103
  Transmission Date: 20170428
  Serious: Yes (Other)
  Sender: FDA-Public Use
  Company Number: FR-INDIVIOR LIMITED-INDV-097508-2016

PATIENT
  Age: 17 Year
  Sex: Male

DRUGS (2)
  1. NEO-CODION                         /01425101/ [Suspect]
     Active Substance: CODEINE\GRINDELIA HIRSUTULA WHOLE\SULFOGAIACOL
     Indication: PRODUCT USED FOR UNKNOWN INDICATION
     Dosage: 40-90 TABLETS, DAILY
     Route: 065
  2. SUBUTEX [Suspect]
     Active Substance: BUPRENORPHINE HYDROCHLORIDE
     Indication: PRODUCT USED FOR UNKNOWN INDICATION
     Dosage: 0.6 MG DAILY
     Route: 065
     Dates: start: 2016

REACTIONS (4)
  - Euphoric mood [Unknown]
  - Overdose [Unknown]
  - Potentiating drug interaction [Unknown]
  - Drug dependence [Unknown]

NARRATIVE: CASE EVENT DATE: 2016
